FAERS Safety Report 8619893 (Version 3)
Quarter: 2013Q2

REPORT INFORMATION
  Report Type: Spontaneous
  Country: US (occurrence: US)
  Receive Date: 20120618
  Receipt Date: 20130521
  Transmission Date: 20140414
  Serious: Yes (Death)
  Sender: FDA-Public Use
  Company Number: US-TEVA-332064USA

PATIENT
  Sex: Male
  Weight: 65.9 kg

DRUGS (3)
  1. FENTORA [Suspect]
     Indication: OSTEOSARCOMA METASTATIC
     Dosage: 1 TABLET Q 4- 6 HRS
     Route: 002
     Dates: end: 20120323
  2. HYDROMORPHONE HYDROCHLORIDE [Concomitant]
     Indication: BONE SARCOMA
     Dosage: 2 PO Q2 PPA
     Route: 048
     Dates: end: 20120323
  3. PROCET                             /01554201/ [Concomitant]
     Indication: BONE SARCOMA
     Dosage: 10/325 2 PO Q4 PPA
     Route: 048
     Dates: end: 20120323

REACTIONS (1)
  - Death [Fatal]
